FAERS Safety Report 9946244 (Version 1)
Quarter: 2014Q1

REPORT INFORMATION
  Report Type: Spontaneous
  Country: US (occurrence: US)
  Receive Date: 20140303
  Receipt Date: 20140303
  Transmission Date: 20141002
  Serious: No
  Sender: FDA-Public Use
  Company Number: US-AMGEN-USASP2014003625

PATIENT
  Age: 67 Year
  Sex: Female
  Weight: 58.05 kg

DRUGS (9)
  1. ENBREL [Suspect]
     Indication: PRODUCT USED FOR UNKNOWN INDICATION
     Dosage: 50 MG, EVERY WEEK
     Route: 058
  2. COD LIVER OIL [Concomitant]
     Dosage: UNK
  3. CELEBREX [Concomitant]
     Dosage: 100 MG, UNK
  4. METHOTREXATE [Concomitant]
     Dosage: 2.5 MG, UNK
  5. SIMVASTATIN [Concomitant]
     Dosage: 20 MG, UNK
  6. TUMS                               /07357001/ [Concomitant]
     Dosage: 1000 MG, UNK
  7. VITAMIN D3 [Concomitant]
     Dosage: 10000 UNIT, UNK
  8. IRON [Concomitant]
     Dosage: 25 MG, UNK
  9. BIOTIN [Concomitant]
     Dosage: 5 MG, UNK

REACTIONS (1)
  - Alopecia [Unknown]
